FAERS Safety Report 16300626 (Version 1)
Quarter: 2019Q2

REPORT INFORMATION
  Report Type: Spontaneous
  Country: CA (occurrence: CA)
  Receive Date: 20190510
  Receipt Date: 20190510
  Transmission Date: 20190711
  Serious: Yes (Life-Threatening, Other)
  Sender: FDA-Public Use
  Company Number: CA-SUNOVION-2019SUN001921

PATIENT
  Age: 18 Year
  Sex: Female

DRUGS (4)
  1. MARIJUANA [Concomitant]
     Active Substance: CANNABIS SATIVA SUBSP. INDICA TOP
  2. PAROXETINE. [Concomitant]
     Active Substance: PAROXETINE
  3. TYLENOL [Concomitant]
     Active Substance: ACETAMINOPHEN
  4. APTIOM [Suspect]
     Active Substance: ESLICARBAZEPINE ACETATE
     Dosage: 800 MG
     Route: 048

REACTIONS (21)
  - Heart rate increased [Unknown]
  - Depressed level of consciousness [Unknown]
  - Electrocardiogram QT prolonged [Unknown]
  - Seizure [Unknown]
  - Suicide attempt [Unknown]
  - Supraventricular tachycardia [Unknown]
  - Toxicologic test abnormal [Unknown]
  - Ventricular tachycardia [Unknown]
  - Prescription drug used without a prescription [Unknown]
  - Cyanosis [Unknown]
  - Dysarthria [Unknown]
  - Muscle rigidity [Unknown]
  - Somnolence [Unknown]
  - Tachycardia [Unknown]
  - Pupillary reflex impaired [Unknown]
  - Endotracheal intubation [Unknown]
  - Headache [Unknown]
  - Cardiac arrest [Unknown]
  - Clonus [Unknown]
  - Continuous haemodiafiltration [Unknown]
  - Resuscitation [Unknown]
